FAERS Safety Report 18594748 (Version 3)
Quarter: 2022Q3

REPORT INFORMATION
  Report Type: Report from Study
  Country: IL (occurrence: IL)
  Receive Date: 20201209
  Receipt Date: 20220923
  Transmission Date: 20221026
  Serious: Yes (Hospitalization)
  Sender: FDA-Public Use
  Company Number: IL-ABBVIE-20K-082-3679847-00

PATIENT
  Age: 69 Year
  Sex: Male
  Weight: 72 kg

DRUGS (7)
  1. VENETOCLAX [Suspect]
     Active Substance: VENETOCLAX
     Indication: Chronic lymphocytic leukaemia
     Dosage: 10 MILLIGRAM
     Route: 048
     Dates: start: 20201018, end: 20201019
  2. VENETOCLAX [Suspect]
     Active Substance: VENETOCLAX
     Indication: Chronic lymphocytic leukaemia
     Dosage: 20 MILLIGRAM
     Route: 048
     Dates: start: 20201020, end: 20201024
  3. VENETOCLAX [Suspect]
     Active Substance: VENETOCLAX
     Indication: Chronic lymphocytic leukaemia
     Dosage: 50 MILLIGRAM
     Route: 048
     Dates: start: 20201025, end: 20201031
  4. VENETOCLAX [Suspect]
     Active Substance: VENETOCLAX
     Indication: Chronic lymphocytic leukaemia
     Dosage: 100 MILLIGRAM
     Route: 048
     Dates: start: 20201101, end: 20201107
  5. VENETOCLAX [Suspect]
     Active Substance: VENETOCLAX
     Indication: Chronic lymphocytic leukaemia
     Dosage: 200 MILLIGRAM
     Route: 048
     Dates: start: 20201108, end: 20201114
  6. VENETOCLAX [Suspect]
     Active Substance: VENETOCLAX
     Indication: Chronic lymphocytic leukaemia
     Dosage: 400 MILLIGRAM
     Route: 048
     Dates: start: 20201115, end: 20201127
  7. ALLOPURINOL [Concomitant]
     Active Substance: ALLOPURINOL
     Indication: Prophylaxis
     Route: 065
     Dates: start: 20201015, end: 20201120

REACTIONS (1)
  - Autoimmune haemolytic anaemia [Recovered/Resolved]

NARRATIVE: CASE EVENT DATE: 20201128
